FAERS Safety Report 6085101-7 (Version None)
Quarter: 2009Q1

REPORT INFORMATION
  Report Type: 
  Country: None (occurrence: None)
  Receive Date: 20090220
  Receipt Date: 20090217
  Transmission Date: 20090719
  Serious: Yes (Other)
  Sender: FDA-Public Use
  Company Number: AU-ASTRAZENECA-2009AP01245

PATIENT
  Age: 29 Year
  Sex: Female

DRUGS (2)
  1. SEROQUEL [Suspect]
     Indication: ANTIPSYCHOTIC DRUG LEVEL
     Route: 048
  2. FOLATE [Concomitant]

REACTIONS (2)
  - DRUG EXPOSURE DURING PREGNANCY [None]
  - PRE-ECLAMPSIA [None]
